FAERS Safety Report 7148282-X (Version None)
Quarter: 2010Q4

REPORT INFORMATION
  Report Type: 
  Country: None (occurrence: None)
  Receive Date: 20101209
  Receipt Date: 20101203
  Transmission Date: 20110411
  Serious: Yes (Death, Hospitalization, Other)
  Sender: FDA-Public Use
  Company Number: PHEH2006US10882

PATIENT
  Sex: Male
  Weight: 79.365 kg

DRUGS (34)
  1. AREDIA [Suspect]
     Indication: MULTIPLE MYELOMA
     Dates: end: 20050301
  2. ZOMETA [Suspect]
     Indication: MULTIPLE MYELOMA
     Dates: start: 20050301, end: 20060101
  3. HUMULIN R [Concomitant]
  4. LIPITOR [Concomitant]
  5. DIGOXIN [Concomitant]
  6. LISINOPRIL [Concomitant]
  7. NEXIUM [Concomitant]
  8. VELCADE [Concomitant]
     Indication: MULTIPLE MYELOMA
  9. RADIOTHERAPY [Concomitant]
  10. DECADRON [Concomitant]
  11. PENICILLIN ^GRUNENTHAL^ [Concomitant]
  12. DEXAMETHASONE [Concomitant]
  13. REVLIMID [Concomitant]
  14. AVODART [Concomitant]
  15. CIPROFLOXACIN [Concomitant]
  16. UROXATRAL [Concomitant]
  17. ASPIRIN [Concomitant]
  18. GLUCOPHAGE [Concomitant]
  19. ZOCOR [Concomitant]
  20. PRILOSEC [Concomitant]
  21. NIACIN [Concomitant]
  22. COREG [Concomitant]
  23. METOLAZONE [Concomitant]
  24. FUROSEMIDE [Concomitant]
  25. DARVOCET-N 100 [Concomitant]
  26. AVANDIA [Concomitant]
  27. ISOPROPYL ALCOHOL COMPOUND LIQUID [Concomitant]
  28. ISOSORBIDE DINITRATE [Concomitant]
     Dosage: 500 MG, Q6H
  29. NOVOLOG [Concomitant]
     Indication: TYPE 2 DIABETES MELLITUS
  30. HYDRALAZINE [Concomitant]
  31. VYTORIN [Concomitant]
  32. ACTOS [Concomitant]
  33. FLORINEF [Concomitant]
  34. MIRALAX [Concomitant]

REACTIONS (77)
  - ABDOMINAL PAIN [None]
  - ABSCESS DRAINAGE [None]
  - ANAL FISTULA [None]
  - ANGINA UNSTABLE [None]
  - ANXIETY [None]
  - ASCITES [None]
  - ATRIAL FIBRILLATION [None]
  - ATRIAL FLUTTER [None]
  - BONE DISORDER [None]
  - BUNDLE BRANCH BLOCK [None]
  - CARDIAC PACEMAKER INSERTION [None]
  - CARDIOMEGALY [None]
  - CHEST PAIN [None]
  - CHOLECYSTECTOMY [None]
  - CONSTIPATION [None]
  - CYSTITIS [None]
  - DEATH [None]
  - DEBRIDEMENT [None]
  - DECREASED INTEREST [None]
  - DEHYDRATION [None]
  - DENTAL OPERATION [None]
  - DENTAL PROSTHESIS PLACEMENT [None]
  - DERMAL CYST [None]
  - DIABETES MELLITUS INADEQUATE CONTROL [None]
  - DIABETIC HYPEROSMOLAR COMA [None]
  - DIARRHOEA [None]
  - DIVERTICULUM [None]
  - DYSPLASIA [None]
  - EAR PAIN [None]
  - EJECTION FRACTION ABNORMAL [None]
  - FISTULA REPAIR [None]
  - GENERAL PHYSICAL HEALTH DETERIORATION [None]
  - HAEMATEMESIS [None]
  - HAEMOGLOBIN DECREASED [None]
  - HIDRADENITIS [None]
  - HYDRONEPHROSIS [None]
  - HYPERBARIC OXYGEN THERAPY [None]
  - HYPERKALAEMIA [None]
  - HYPERTENSION [None]
  - HYPOAESTHESIA ORAL [None]
  - HYPOGLYCAEMIA [None]
  - HYPONATRAEMIA [None]
  - ILIAC ARTERY STENOSIS [None]
  - IMPAIRED HEALING [None]
  - INFECTION [None]
  - INTERMITTENT CLAUDICATION [None]
  - IRON DEFICIENCY ANAEMIA [None]
  - JAW FRACTURE [None]
  - LYMPHADENOPATHY MEDIASTINAL [None]
  - METABOLIC ACIDOSIS [None]
  - METAPLASIA [None]
  - METASTASES TO BONE [None]
  - MULTIPLE MYELOMA [None]
  - MUSCULOSKELETAL DISCOMFORT [None]
  - OEDEMA PERIPHERAL [None]
  - OPEN REDUCTION OF FRACTURE [None]
  - OSTEOLYSIS [None]
  - OSTEOMYELITIS [None]
  - OSTEONECROSIS OF JAW [None]
  - OSTEORADIONECROSIS [None]
  - PAIN [None]
  - PAIN IN EXTREMITY [None]
  - PAIN IN JAW [None]
  - PARAESTHESIA [None]
  - PERIPHERAL ARTERIAL OCCLUSIVE DISEASE [None]
  - PERIRECTAL ABSCESS [None]
  - PRIMARY SEQUESTRUM [None]
  - PROCTALGIA [None]
  - RECTAL FISTULA REPAIR [None]
  - RENAL CYST [None]
  - RENAL FAILURE ACUTE [None]
  - RENAL FAILURE CHRONIC [None]
  - ROSACEA [None]
  - SPONDYLOLYSIS [None]
  - STREPTOCOCCUS TEST POSITIVE [None]
  - TOOTH EXTRACTION [None]
  - URINARY TRACT INFECTION [None]
